FAERS Safety Report 12348329 (Version 1)
Quarter: 2016Q2

REPORT INFORMATION
  Report Type: Spontaneous
  Country: LV (occurrence: LV)
  Receive Date: 20160509
  Receipt Date: 20160509
  Transmission Date: 20160815
  Serious: Yes (Hospitalization)
  Sender: FDA-Public Use
  Company Number: LV-MYLANLABS-2016M1018839

PATIENT

DRUGS (4)
  1. PREDNISOLONE. [Concomitant]
     Active Substance: PREDNISOLONE
     Dosage: 30 MG, QD
  2. VANCOMYCIN [Suspect]
     Active Substance: VANCOMYCIN
     Indication: FASCIAL INFECTION
     Dosage: UNK
     Route: 065
  3. OXACILLIN [Concomitant]
     Active Substance: OXACILLIN SODIUM
     Indication: FASCIAL INFECTION
     Dosage: UNK
  4. PREDNISOLONE. [Concomitant]
     Active Substance: PREDNISOLONE
     Indication: MYOPATHY
     Dosage: 60 MG, QD

REACTIONS (1)
  - Fungal pharyngitis [Recovered/Resolved]
